FAERS Safety Report 5069770-6 (Version None)
Quarter: 2006Q3

REPORT INFORMATION
  Report Type: 
  Country: None (occurrence: None)
  Receive Date: 20060803
  Receipt Date: 20060731
  Transmission Date: 20061208
  Serious: Yes (Death)
  Sender: FDA-Public Use
  Company Number: BR-GLAXOSMITHKLINE-A0614507A

PATIENT
  Age: 73 Year
  Sex: Female

DRUGS (4)
  1. SERETIDE [Suspect]
     Indication: BRONCHITIS
     Route: 055
     Dates: start: 20010101, end: 20060722
  2. DIGOXIN [Concomitant]
  3. AMIODARONE HCL [Concomitant]
  4. CARDIOVASCULAR DRUGS (UNSPECIFIED) [Concomitant]
     Indication: CARDIOVASCULAR DISORDER

REACTIONS (1)
  - DEATH [None]
